FAERS Safety Report 6112463-4 (Version None)
Quarter: 2009Q1

REPORT INFORMATION
  Report Type: 
  Country: None (occurrence: None)
  Receive Date: 20090312
  Receipt Date: 20090305
  Transmission Date: 20090719
  Serious: Yes (Hospitalization)
  Sender: FDA-Public Use
  Company Number: CN-JNJFOC-20090300937

PATIENT
  Age: 52 Year
  Sex: Male
  Weight: 56 kg

DRUGS (3)
  1. TYLENOL [Suspect]
     Route: 001
  2. TYLENOL [Suspect]
     Indication: NASOPHARYNGITIS
     Dosage: FOR 3 DOSES
     Route: 001
  3. UNSPECIFIED DRUG [Suspect]
     Indication: NASOPHARYNGITIS

REACTIONS (5)
  - ASTHENIA [None]
  - DIZZINESS [None]
  - GAIT DISTURBANCE [None]
  - GLOSSOPHARYNGEAL NERVE PARALYSIS [None]
  - INAPPROPRIATE SCHEDULE OF DRUG ADMINISTRATION [None]
